FAERS Safety Report 9972489 (Version 1)
Quarter: 2014Q1

REPORT INFORMATION
  Report Type: Report from Study
  Country: US (occurrence: US)
  Receive Date: 20140306
  Receipt Date: 20140306
  Transmission Date: 20141002
  Serious: No
  Sender: FDA-Public Use
  Company Number: US-ABBVIE-13P-163-1154007-00

PATIENT
  Age: 55 Year
  Sex: Male

DRUGS (5)
  1. HUMIRA [Suspect]
     Indication: ANKYLOSING SPONDYLITIS
     Dates: start: 2008, end: 2013
  2. HUMIRA [Suspect]
     Dates: start: 201309
  3. PIROXICAM [Concomitant]
     Indication: INFLAMMATION
     Dosage: 20 MG DAILY
  4. TRILEPTAL [Concomitant]
     Indication: EPILEPSY
     Dosage: 1800 MG DAILY
  5. SIMPONI [Concomitant]
     Indication: ANKYLOSING SPONDYLITIS

REACTIONS (5)
  - Iritis [Not Recovered/Not Resolved]
  - Wrong technique in drug usage process [Not Recovered/Not Resolved]
  - Incorrect dose administered [Not Recovered/Not Resolved]
  - Hypertension [Not Recovered/Not Resolved]
  - Hypertension [Not Recovered/Not Resolved]
